FAERS Safety Report 4381856-8 (Version None)
Quarter: 2004Q2

REPORT INFORMATION
  Report Type: 
  Country: None (occurrence: None)
  Receive Date: 20040615
  Receipt Date: 20040603
  Transmission Date: 20050107
  Serious: Yes (Death, Hospitalization)
  Sender: FDA-Public Use
  Company Number: 2003CG01345

PATIENT
  Age: 44 Year
  Sex: Female

DRUGS (5)
  1. IRESSA [Suspect]
     Indication: OVARIAN CANCER
     Dosage: 500 MG DAILY PO
     Route: 048
     Dates: start: 20020924, end: 20021024
  2. IRESSA [Suspect]
     Indication: OVARIAN CANCER
     Dosage: 250 MG DAILY PO
     Route: 048
     Dates: start: 20021025, end: 20030919
  3. TAXOL [Suspect]
     Indication: OVARIAN CANCER
     Dosage: 260 MG Q3WK IV
     Route: 042
     Dates: start: 20020924, end: 20030227
  4. PARAPLATIN [Suspect]
     Indication: OVARIAN CANCER
     Dosage: 425 MG Q3WK IV
     Route: 042
     Dates: start: 20020924, end: 20021127
  5. OXALIPLATIN [Concomitant]

REACTIONS (8)
  - ACUTE LYMPHOCYTIC LEUKAEMIA [None]
  - BLOOD CREATININE INCREASED [None]
  - CHILLS [None]
  - HAEMATURIA [None]
  - PETECHIAE [None]
  - PYREXIA [None]
  - THROMBOCYTOPENIA [None]
  - TUMOUR LYSIS SYNDROME [None]
